FAERS Safety Report 9611113 (Version 2)
Quarter: 2013Q4

REPORT INFORMATION
  Report Type: Spontaneous
  Country: US (occurrence: US)
  Receive Date: 20131009
  Receipt Date: 20131120
  Transmission Date: 20140711
  Serious: Yes (Hospitalization)
  Sender: FDA-Public Use
  Company Number: US-TMC-CABO-13003416

PATIENT
  Sex: Female

DRUGS (9)
  1. COMETRIQ [Suspect]
     Indication: THYROID CANCER
     Dosage: 140 MG, QD
     Route: 048
     Dates: start: 20130912, end: 20131114
  2. ASACOL [Concomitant]
  3. NEXIUM [Concomitant]
  4. XARELTO [Concomitant]
  5. PRAVASTATIN [Concomitant]
  6. DILAUDID [Concomitant]
  7. BYSTOLIC [Concomitant]
  8. MULTIVITAMIN [Concomitant]
  9. STOOL SOFTENER [Concomitant]

REACTIONS (4)
  - Gallbladder disorder [Unknown]
  - Back pain [Unknown]
  - Hepatic enzyme increased [Unknown]
  - Dehydration [Unknown]
